FAERS Safety Report 7677982-8 (Version None)
Quarter: 2011Q3

REPORT INFORMATION
  Report Type: 
  Country: None (occurrence: None)
  Receive Date: 20110811
  Receipt Date: 20110625
  Transmission Date: 20111222
  Serious: Yes (Other)
  Sender: FDA-Public Use
  Company Number: US-GLAXOSMITHKLINE-A0933949A

PATIENT
  Sex: Female

DRUGS (1)
  1. VOTRIENT [Suspect]
     Indication: MALIGNANT SOFT TISSUE NEOPLASM
     Dosage: 600MG PER DAY
     Route: 048

REACTIONS (6)
  - BRADYCARDIA [None]
  - FATIGUE [None]
  - ANAEMIA [None]
  - HEART RATE DECREASED [None]
  - ARTHRALGIA [None]
  - ABDOMINAL PAIN UPPER [None]
